FAERS Safety Report 6275005-9 (Version None)
Quarter: 2009Q3

REPORT INFORMATION
  Report Type: 
  Country: None (occurrence: None)
  Receive Date: 20090717
  Receipt Date: 20090703
  Transmission Date: 20100115
  Serious: Yes (Life-Threatening, Hospitalization)
  Sender: FDA-Public Use
  Company Number: 001074

PATIENT
  Sex: Female
  Weight: 87.2 kg

DRUGS (5)
  1. VIMPAT [Suspect]
     Indication: EPILEPSY
     Dosage: (200 MG ORAL)
     Route: 048
     Dates: start: 20090505, end: 20090601
  2. KEPPRA [Concomitant]
  3. RIVOTRIL [Concomitant]
  4. TEGRETOL [Concomitant]
  5. ZONEGRAN [Concomitant]

REACTIONS (1)
  - PULMONARY EMBOLISM [None]
